FAERS Safety Report 4793416-5 (Version None)
Quarter: 2005Q4

REPORT INFORMATION
  Report Type: 
  Country: None (occurrence: None)
  Receive Date: 20051006
  Receipt Date: 20050919
  Transmission Date: 20060501
  Serious: Yes (Death)
  Sender: FDA-Public Use
  Company Number: AND_0036_2005

PATIENT
  Age: 52 Year

DRUGS (3)
  1. ACETAMINOPHEN W/ CODEINE [Suspect]
     Dosage: DF UNK UNK
     Route: 065
  2. CARISOPRODOL [Suspect]
     Dosage: DF UNK UNK
     Route: 065
  3. DIPHENHYDRAMINE HCL [Suspect]
     Dosage: DF UNK UNK
     Route: 065

REACTIONS (2)
  - COMPLETED SUICIDE [None]
  - OVERDOSE [None]
